FAERS Safety Report 15061901 (Version 2)
Quarter: 2018Q3

REPORT INFORMATION
  Report Type: Report from Study
  Country: IR (occurrence: IR)
  Receive Date: 20180625
  Receipt Date: 20180705
  Transmission Date: 20181010
  Serious: Yes (Life-Threatening, Other)
  Sender: FDA-Public Use
  Company Number: IR-BAYER-2018-117872

PATIENT
  Age: 27 Year
  Sex: Male

DRUGS (1)
  1. NEXAVAR [Suspect]
     Active Substance: SORAFENIB
     Indication: HEPATOCELLULAR CARCINOMA
     Dosage: 400 MG, BID
     Route: 048
     Dates: start: 20160130

REACTIONS (2)
  - Diarrhoea [Recovering/Resolving]
  - Gastrointestinal stoma output increased [None]

NARRATIVE: CASE EVENT DATE: 20180515
